FAERS Safety Report 10767445 (Version 1)
Quarter: 2015Q1

REPORT INFORMATION
  Report Type: Spontaneous
  Country: US (occurrence: US)
  Receive Date: 20150205
  Receipt Date: 20150205
  Transmission Date: 20150721
  Serious: Yes (Other)
  Sender: FDA-Public Use
  Company Number: US-BAXTER-2015BAX005009

PATIENT
  Age: 52 Year
  Sex: Male

DRUGS (2)
  1. CEFEPIME [Suspect]
     Active Substance: CEFEPIME\CEFEPIME HYDROCHLORIDE
     Indication: WOUND INFECTION
     Route: 042
  2. VANCOMYCIN INJECTION, USP [Suspect]
     Active Substance: VANCOMYCIN
     Indication: WOUND INFECTION
     Route: 042

REACTIONS (3)
  - Staphylococcal infection [Recovered/Resolved]
  - No therapeutic response [Recovered/Resolved]
  - Pyoderma gangrenosum [Recovered/Resolved]
